FAERS Safety Report 9386403 (Version 4)
Quarter: 2013Q4

REPORT INFORMATION
  Report Type: Spontaneous
  Country: US (occurrence: US)
  Receive Date: 20130708
  Receipt Date: 20131017
  Transmission Date: 20140711
  Serious: No
  Sender: FDA-Public Use
  Company Number: US-BIOGENIDEC-2013BI059309

PATIENT
  Age: 56 Year
  Sex: Female

DRUGS (6)
  1. TYSABRI [Suspect]
     Indication: MULTIPLE SCLEROSIS
     Route: 042
     Dates: start: 20130530
  2. VALIUM [Concomitant]
     Indication: DIZZINESS
  3. PROZAC [Concomitant]
     Indication: DEPRESSION
     Dates: start: 1994
  4. BETASERON [Concomitant]
     Indication: MULTIPLE SCLEROSIS
  5. REBIF [Concomitant]
     Indication: MULTIPLE SCLEROSIS
  6. COPAXONE [Concomitant]
     Indication: MULTIPLE SCLEROSIS

REACTIONS (27)
  - Erythema [Recovered/Resolved]
  - Feeling of body temperature change [Recovered/Resolved]
  - Localised infection [Unknown]
  - Vertigo [Unknown]
  - Depression [Not Recovered/Not Resolved]
  - Vulvovaginal pain [Unknown]
  - Vulvovaginal swelling [Unknown]
  - Somnolence [Not Recovered/Not Resolved]
  - Gait disturbance [Not Recovered/Not Resolved]
  - Muscular weakness [Not Recovered/Not Resolved]
  - Hypersensitivity [Recovered/Resolved]
  - Osteoporosis [Unknown]
  - Fall [Recovered/Resolved]
  - Neck pain [Unknown]
  - Ear disorder [Not Recovered/Not Resolved]
  - Ear pain [Not Recovered/Not Resolved]
  - Infusion site reaction [Unknown]
  - Malaise [Unknown]
  - Pruritus [Recovered/Resolved]
  - Fatigue [Not Recovered/Not Resolved]
  - Rash [Unknown]
  - Asthenia [Not Recovered/Not Resolved]
  - Flushing [Unknown]
  - Multiple sclerosis relapse [Not Recovered/Not Resolved]
  - Dermatitis allergic [Recovered/Resolved]
  - Dizziness [Not Recovered/Not Resolved]
  - Headache [Not Recovered/Not Resolved]
